FAERS Safety Report 17041483 (Version 1)
Quarter: 2019Q4

REPORT INFORMATION
  Report Type: Spontaneous
  Country: GB (occurrence: GB)
  Receive Date: 20191118
  Receipt Date: 20191118
  Transmission Date: 20200122
  Serious: Yes (Disabling, Other)
  Sender: FDA-Public Use
  Company Number: GB-TEVA-2019-GB-1137245

PATIENT
  Age: 74 Year
  Sex: Male
  Weight: 104 kg

DRUGS (4)
  1. RAMIPRIL. [Concomitant]
     Active Substance: RAMIPRIL
     Indication: HYPERTENSION
     Dosage: 1 DOSAGE FORM PER DAY
     Route: 048
     Dates: start: 201710
  2. DOXAZOSIN [Suspect]
     Active Substance: DOXAZOSIN MESYLATE
     Indication: HYPERTENSION
     Dosage: 2MG THEN 4MG, THEN 6MG
     Route: 048
     Dates: start: 201710
  3. MULTIVITAMIN [Concomitant]
     Active Substance: VITAMINS
     Dosage: 1 DOSAGE FORM PER DAY
     Route: 048
     Dates: start: 201709
  4. BISOPROLOL [Concomitant]
     Active Substance: BISOPROLOL
     Indication: HYPERTENSION
     Dosage: 1 DOSAGE FORM PER DAY
     Route: 048
     Dates: start: 201801

REACTIONS (2)
  - Joint swelling [Recovering/Resolving]
  - Peripheral swelling [Recovering/Resolving]

NARRATIVE: CASE EVENT DATE: 201710
